FAERS Safety Report 5114840-7 (Version None)
Quarter: 2006Q3

REPORT INFORMATION
  Report Type: 
  Country: None (occurrence: None)
  Receive Date: 20060926
  Receipt Date: 20060914
  Transmission Date: 20061208
  Serious: Yes (Life-Threatening, Other)
  Sender: FDA-Public Use
  Company Number: US-BAYER-200615601BWH

PATIENT

DRUGS (2)
  1. AVELOX [Suspect]
     Indication: PNEUMONIA
  2. COUMADIN [Suspect]

REACTIONS (5)
  - CEREBROVASCULAR ACCIDENT [None]
  - CLOSTRIDIUM DIFFICILE COLITIS [None]
  - DIARRHOEA [None]
  - DYSARTHRIA [None]
  - HAEMORRHAGE [None]
